FAERS Safety Report 8871810 (Version 2)
Quarter: 2014Q2

REPORT INFORMATION
  Report Type: Spontaneous
  Country: US (occurrence: US)
  Receive Date: 20121023
  Receipt Date: 20140609
  Transmission Date: 20141212
  Serious: Yes (Hospitalization, Other)
  Sender: FDA-Public Use
  Company Number: US-ASTELLAS-2012US006961

PATIENT
  Age: 40 Year
  Sex: Female
  Weight: 64 kg

DRUGS (8)
  1. PROGRAF [Suspect]
     Indication: RENAL TRANSPLANT
     Route: 048
     Dates: start: 20070921
  2. HUMULIN N [Concomitant]
     Indication: PRODUCT USED FOR UNKNOWN INDICATION
     Route: 065
     Dates: start: 1983
  3. MYFORTIC [Concomitant]
     Indication: RENAL TRANSPLANT
     Route: 048
     Dates: start: 20070921
  4. DIOVAN [Concomitant]
     Indication: BLOOD PRESSURE
     Route: 048
     Dates: start: 20070921
  5. METOPROLOL [Concomitant]
     Indication: BLOOD PRESSURE
     Route: 048
     Dates: start: 20070921
  6. LEVOTHYROXINE [Concomitant]
     Indication: THYROID THERAPY
     Route: 048
     Dates: start: 20070921
  7. HUMULIN R [Concomitant]
     Indication: PRODUCT USED FOR UNKNOWN INDICATION
     Route: 065
     Dates: start: 1983
  8. BAYER ASPIRIN [Concomitant]
     Indication: PRODUCT USED FOR UNKNOWN INDICATION
     Route: 048
     Dates: start: 20070921

REACTIONS (3)
  - Drug ineffective [Unknown]
  - Cerebral haemorrhage [Recovered/Resolved]
  - Kidney transplant rejection [Not Recovered/Not Resolved]
